FAERS Safety Report 10792367 (Version 1)
Quarter: 2015Q1

REPORT INFORMATION
  Report Type: Spontaneous
  Country: JP (occurrence: None)
  Receive Date: 20150211
  Receipt Date: 20150211
  Transmission Date: 20150721
  Serious: Yes (Hospitalization)
  Sender: FDA-Public Use
  Company Number: INT_00681_2015

PATIENT
  Age: 66 Year
  Sex: Male

DRUGS (4)
  1. CISPLATIN (CISPLATIN) (HQ SPECIALTY) [Suspect]
     Active Substance: CISPLATIN
     Indication: OESOPHAGEAL CARCINOMA
     Dosage: DF AT LEAST TWO COURSES
  2. DOCETAXEL (DOCETAXEL) [Suspect]
     Active Substance: DOCETAXEL
     Indication: OESOPHAGEAL CARCINOMA
     Dosage: DF AT LEAST TWO COURSES
  3. 5 FU [Suspect]
     Active Substance: FLUOROURACIL
     Indication: OESOPHAGEAL CARCINOMA
     Dosage: DF AT LEAST TWO COURSES
  4. RADIATION THERAPY [Suspect]
     Active Substance: RADIATION THERAPY
     Indication: OESOPHAGEAL CARCINOMA
     Dosage: DF

REACTIONS (3)
  - Febrile neutropenia [None]
  - Bacillus infection [None]
  - Leptotrichia infection [None]

NARRATIVE: CASE EVENT DATE: 201105
